FAERS Safety Report 11988122 (Version 2)
Quarter: 2016Q2

REPORT INFORMATION
  Report Type: Report from Study
  Country: JP (occurrence: JP)
  Receive Date: 20160202
  Receipt Date: 20160511
  Transmission Date: 20160815
  Serious: No
  Sender: FDA-Public Use
  Company Number: JP-EISAI MEDICAL RESEARCH-EC-2016-014027

PATIENT
  Age: 69 Year
  Sex: Male
  Weight: 79 kg

DRUGS (9)
  1. LENVIMA [Suspect]
     Active Substance: LENVATINIB
     Route: 048
     Dates: start: 20151006
  2. HIRUDOID [Concomitant]
     Active Substance: GLYCOSAMINOGLYCANS
  3. MYSER [Concomitant]
     Active Substance: DIFLUPREDNATE
  4. CANDESARTAN [Concomitant]
     Active Substance: CANDESARTAN
  5. LEVOTHYROXINE SODIUM HYDRATE [Concomitant]
  6. PYDOXAL [Concomitant]
     Active Substance: PYRIDOXAL
  7. NORVASC [Concomitant]
     Active Substance: AMLODIPINE BESYLATE
  8. KERATINAMIN [Concomitant]
     Active Substance: UREA
  9. LENVIMA [Suspect]
     Active Substance: LENVATINIB
     Indication: PAPILLARY THYROID CANCER
     Route: 048
     Dates: start: 20150707, end: 20150820

REACTIONS (3)
  - Hypertension [Recovered/Resolved]
  - Palmar-plantar erythrodysaesthesia syndrome [Recovered/Resolved]
  - Proteinuria [Recovered/Resolved]

NARRATIVE: CASE EVENT DATE: 20150819
